FAERS Safety Report 8017329-0 (Version None)
Quarter: 2012Q1

REPORT INFORMATION
  Report Type: 
  Country: None (occurrence: None)
  Receive Date: 20120102
  Receipt Date: 20111220
  Transmission Date: 20120608
  Serious: Yes (Hospitalization)
  Sender: FDA-Public Use
  Company Number: JP-ROCHE-1023681

PATIENT
  Sex: Female
  Weight: 59 kg

DRUGS (8)
  1. LEVOTHYROXINE SODIUM [Concomitant]
     Indication: HYPOTHYROIDISM
     Route: 048
  2. ACTEMRA [Suspect]
     Indication: RHEUMATOID ARTHRITIS
     Dosage: 460-488MG
     Route: 041
     Dates: start: 20090713, end: 20110822
  3. SOLETON [Concomitant]
     Indication: RHEUMATOID ARTHRITIS
     Route: 048
  4. RIMATIL [Concomitant]
     Indication: RHEUMATOID ARTHRITIS
     Route: 048
  5. ISONIAZID [Concomitant]
     Indication: ANTIBIOTIC PROPHYLAXIS
     Route: 048
  6. PREDNISOLONE [Suspect]
     Indication: RHEUMATOID ARTHRITIS
     Route: 048
  7. PREDNISOLONE [Suspect]
     Route: 048
  8. DOMPERIDONE [Concomitant]
     Indication: PROPHYLAXIS
     Route: 048

REACTIONS (4)
  - MENINGITIS [None]
  - EXTRADURAL ABSCESS [None]
  - SEPSIS [None]
  - MUSCLE ABSCESS [None]
